FAERS Safety Report 24809095 (Version 2)
Quarter: 2025Q2

REPORT INFORMATION
  Report Type: Spontaneous
  Country: DE (occurrence: DE)
  Receive Date: 20250106
  Receipt Date: 20250501
  Transmission Date: 20250717
  Serious: Yes (Other)
  Sender: AUROBINDO
  Company Number: DE-GERMAN-LIT/DEU/24/0018796

PATIENT
  Age: 29 Year
  Sex: Female

DRUGS (3)
  1. IBUPROFEN [Suspect]
     Active Substance: IBUPROFEN
     Indication: Post lumbar puncture syndrome
     Route: 065
  2. ACETAMINOPHEN [Suspect]
     Active Substance: ACETAMINOPHEN
     Indication: Post lumbar puncture syndrome
     Route: 065
  3. CAFFEINE [Suspect]
     Active Substance: CAFFEINE
     Indication: Post lumbar puncture syndrome
     Route: 065

REACTIONS (1)
  - Drug ineffective [Unknown]
